FAERS Safety Report 5542458-0 (Version None)
Quarter: 2007Q4

REPORT INFORMATION
  Report Type: 
  Country: None (occurrence: None)
  Receive Date: 20071210
  Receipt Date: 20071129
  Transmission Date: 20080405
  Serious: Yes (Death)
  Sender: FDA-Public Use
  Company Number: AU-SANOFI-SYNTHELABO-A01200713454

PATIENT
  Age: 78 Year
  Sex: Female

DRUGS (1)
  1. ISCOVER [Suspect]
     Indication: DRUG USE FOR UNKNOWN INDICATION
     Dosage: UNK
     Route: 048
     Dates: start: 20060101

REACTIONS (3)
  - HEPATIC FAILURE [None]
  - NEUTROPENIA [None]
  - RENAL FAILURE [None]
